FAERS Safety Report 4791140-6 (Version None)
Quarter: 2005Q4

REPORT INFORMATION
  Report Type: 
  Country: None (occurrence: None)
  Receive Date: 20051005
  Receipt Date: 20050929
  Transmission Date: 20060501
  Serious: Yes (Other)
  Sender: FDA-Public Use
  Company Number: 143274USA

PATIENT
  Sex: Female

DRUGS (1)
  1. PIMOZIDE [Suspect]
     Indication: SCHIZOPHRENIA
     Dosage: 8 MILLIGRAM ORAL
     Route: 048

REACTIONS (1)
  - BREAST CYST [None]
